FAERS Safety Report 9249164 (Version 1)
Quarter: 2013Q2

REPORT INFORMATION
  Report Type: Spontaneous
  Country: FR (occurrence: FR)
  Receive Date: 20130423
  Receipt Date: 20130423
  Transmission Date: 20140414
  Serious: Yes (Death, Other)
  Sender: FDA-Public Use
  Company Number: FR-TEVA-329190ISR

PATIENT
  Age: 58 Year
  Sex: Female

DRUGS (3)
  1. EFFENTORA 400 MCG [Suspect]
     Dosage: 3200 MICROGRAM DAILY;
     Route: 002
  2. LEXOMIL [Concomitant]
     Dosage: 1 DOSAGE FORMS DAILY; ? TABLET IN THE MORNING , 1/4 TABLET AT NOON AND ? TABLET IN EVENING
     Route: 048
  3. ATARAX [Concomitant]
     Dosage: 25 MILLIGRAM DAILY;
     Route: 048

REACTIONS (4)
  - Death [Fatal]
  - Drug dependence [Unknown]
  - Overdose [Unknown]
  - Off label use [Unknown]
